FAERS Safety Report 4880868-5 (Version None)
Quarter: 2005Q4

REPORT INFORMATION
  Report Type: 
  Country: None (occurrence: None)
  Receive Date: 20051223
  Receipt Date: 20051111
  Transmission Date: 20060501
  Serious: No
  Sender: FDA-Public Use
  Company Number: 05P-163-0317046-00

PATIENT
  Age: 76 Year
  Sex: Female
  Weight: 109 kg

DRUGS (6)
  1. HUMIRA [Suspect]
     Indication: RHEUMATOID ARTHRITIS
     Dosage: 40 MG, 1 IN 2 WKS, SUBCUTANEOUS
     Route: 058
     Dates: start: 20050820
  2. OXYGEN [Concomitant]
  3. ATENOLOL [Concomitant]
  4. FOLIC ACID [Concomitant]
  5. ESOMEPRAZOLE [Concomitant]
  6. ZETIA [Concomitant]

REACTIONS (3)
  - FALL [None]
  - SKIN LACERATION [None]
  - URINARY TRACT INFECTION [None]
